FAERS Safety Report 8014878-6 (Version None)
Quarter: 2011Q4

REPORT INFORMATION
  Report Type: 
  Country: None (occurrence: None)
  Receive Date: 20111229
  Receipt Date: 20111227
  Transmission Date: 20120403
  Serious: No
  Sender: FDA-Public Use
  Company Number: US-PFIZER INC-2011314364

PATIENT
  Sex: Female
  Weight: 117.9 kg

DRUGS (3)
  1. ACETAMINOPHEN [Concomitant]
     Indication: PAIN
     Dosage: UNK, AS NEEDED
  2. MOTRIN [Concomitant]
     Indication: PAIN
     Dosage: UNK, AS NEEDED
  3. NEURONTIN [Suspect]
     Indication: THORACIC OUTLET SYNDROME
     Dosage: 300 MG, 1X/DAY
     Route: 048
     Dates: start: 20111201, end: 20111201

REACTIONS (3)
  - MEMORY IMPAIRMENT [None]
  - PAIN [None]
  - BALANCE DISORDER [None]
